FAERS Safety Report 4760853-4 (Version None)
Quarter: 2005Q3

REPORT INFORMATION
  Report Type: 
  Country: None (occurrence: None)
  Receive Date: 20050901
  Receipt Date: 20050825
  Transmission Date: 20060218
  Serious: Yes (Hospitalization, Other)
  Sender: FDA-Public Use
  Company Number: 2005103569

PATIENT
  Age: 76 Year
  Sex: Female
  Weight: 69.8539 kg

DRUGS (7)
  1. CELEBREX [Suspect]
     Indication: PAIN IN EXTREMITY
     Dosage: 200 MG (200 MG, 1 N 1D), ORAL
     Route: 048
     Dates: start: 20050607, end: 20050101
  2. DARVOCET [Suspect]
     Indication: ILL-DEFINED DISORDER
  3. MORPHINE [Suspect]
     Indication: ILL-DEFINED DISORDER
  4. TEGRETOL [Concomitant]
  5. LIPITOR [Concomitant]
  6. NORMODYNE (LABETALOL HYDROCHLRIDE) [Concomitant]
  7. ZESTRIL [Concomitant]

REACTIONS (8)
  - ABDOMINAL DISTENSION [None]
  - FALL [None]
  - FEMUR FRACTURE [None]
  - INTESTINAL OBSTRUCTION [None]
  - MULTIPLE DRUG OVERDOSE [None]
  - PRURITUS [None]
  - RASH [None]
  - URTICARIA [None]
